FAERS Safety Report 22077762 (Version 1)
Quarter: 2023Q1

REPORT INFORMATION
  Report Type: Report from Study
  Country: CA (occurrence: None)
  Receive Date: 20230309
  Receipt Date: 20230309
  Transmission Date: 20230418
  Serious: Yes (Hospitalization, Other)
  Sender: FDA-Public Use
  Company Number: CA-ROCHE-2638959

PATIENT
  Age: 76 Year

DRUGS (2)
  1. VEMURAFENIB [Suspect]
     Active Substance: VEMURAFENIB
     Indication: Neoplasm malignant
     Dosage: 960 MG ORALLY EVERY 12 HOURS (AS PER PROTOCOL)
     Route: 048
     Dates: start: 20190921
  2. COBIMETINIB [Suspect]
     Active Substance: COBIMETINIB
     Indication: Neoplasm malignant
     Dosage: 60 MG ORALLY ONCE DAILY FOR 21 DAYS, FOLLOWED BY 7 DAYS OF REST (AS PER PROTOCOL)
     Route: 048
     Dates: start: 20190921

REACTIONS (3)
  - Hypotension [Unknown]
  - Supraventricular tachycardia [Unknown]
  - Electrocardiogram QT prolonged [Unknown]

NARRATIVE: CASE EVENT DATE: 20191018
